FAERS Safety Report 18811490 (Version 2)
Quarter: 2021Q1

REPORT INFORMATION
  Report Type: Spontaneous
  Country: KR (occurrence: KR)
  Receive Date: 20210130
  Receipt Date: 20210211
  Transmission Date: 20210419
  Serious: Yes (Other)
  Sender: FDA-Public Use
  Company Number: KR-LUPIN PHARMACEUTICALS INC.-2021-00808

PATIENT
  Age: 62 Year
  Sex: Female

DRUGS (4)
  1. ZOPICLONE [Suspect]
     Active Substance: ZOPICLONE
     Indication: SCHIZOPHRENIA
     Dosage: 7.5 MILLIGRAM
     Route: 065
  2. CLONAZEPAM. [Suspect]
     Active Substance: CLONAZEPAM
     Indication: SCHIZOPHRENIA
     Dosage: 2 MILLIGRAM
     Route: 065
  3. ZIPRASIDONE. [Suspect]
     Active Substance: ZIPRASIDONE
     Indication: SCHIZOPHRENIA
     Dosage: 160 MILLIGRAM
     Route: 065
  4. OLANZAPINE. [Suspect]
     Active Substance: OLANZAPINE
     Indication: SCHIZOPHRENIA
     Dosage: 20 MILLIGRAM
     Route: 065

REACTIONS (5)
  - Hypercholesterolaemia [Unknown]
  - Constipation [Unknown]
  - Electrocardiogram QT prolonged [Unknown]
  - Dry mouth [Unknown]
  - Glucose tolerance impaired [Unknown]
